FAERS Safety Report 21105285 (Version 1)
Quarter: 2022Q3

REPORT INFORMATION
  Report Type: Report from Study
  Country: US (occurrence: US)
  Receive Date: 20220720
  Receipt Date: 20220720
  Transmission Date: 20221026
  Serious: Yes (Hospitalization, Other)
  Sender: FDA-Public Use
  Company Number: US-HORIZON THERAPEUTICS-HZN-2022-005025

PATIENT

DRUGS (2)
  1. KRYSTEXXA [Suspect]
     Active Substance: PEGLOTICASE
     Indication: Product used for unknown indication
     Dosage: FIRST INFUSION
     Route: 042
     Dates: start: 20220611
  2. KRYSTEXXA [Suspect]
     Active Substance: PEGLOTICASE
     Dosage: UNKNOWN INFUSION
     Route: 042
     Dates: start: 20220714

REACTIONS (4)
  - Seizure [Unknown]
  - Loss of consciousness [Unknown]
  - Somnolence [Unknown]
  - Blood uric acid increased [Unknown]

NARRATIVE: CASE EVENT DATE: 20220101
